FAERS Safety Report 4790277-5 (Version None)
Quarter: 2005Q4

REPORT INFORMATION
  Report Type: 
  Country: None (occurrence: None)
  Receive Date: 20051005
  Receipt Date: 20051005
  Transmission Date: 20060501
  Serious: Yes (Life-Threatening, Hospitalization)
  Sender: FDA-Public Use
  Company Number: None

PATIENT
  Sex: Female

DRUGS (13)
  1. WARFARIN [Suspect]
     Indication: AORTIC VALVE REPLACEMENT
     Dosage: 5MG PO DAILY
     Route: 048
  2. WARFARIN [Suspect]
     Indication: MITRAL VALVE DISEASE
     Dosage: 5MG PO DAILY
     Route: 048
  3. WARFARIN [Suspect]
     Indication: THROMBOSIS PROPHYLAXIS
     Dosage: 5MG PO DAILY
     Route: 048
  4. SYNTHROID [Concomitant]
  5. ATENOLOL [Concomitant]
  6. OMEPRAZOLE [Concomitant]
  7. AMLODIPINE [Concomitant]
  8. FOLATE [Concomitant]
  9. B12 [Concomitant]
  10. ASPIRIN [Concomitant]
  11. M.V.I. [Concomitant]
  12. WARFARIN SODIUM [Concomitant]
  13. ATORVASTATIN [Concomitant]

REACTIONS (8)
  - DEPRESSED LEVEL OF CONSCIOUSNESS [None]
  - DIZZINESS [None]
  - HAEMOGLOBIN DECREASED [None]
  - HYPERHIDROSIS [None]
  - INTERNATIONAL NORMALISED RATIO INCREASED [None]
  - MELAENA [None]
  - NAUSEA [None]
  - OCCULT BLOOD POSITIVE [None]
